FAERS Safety Report 4341171-5 (Version None)
Quarter: 2004Q2

REPORT INFORMATION
  Report Type: 
  Country: None (occurrence: None)
  Receive Date: 20040419
  Receipt Date: 20040407
  Transmission Date: 20050107
  Serious: Yes (Hospitalization, Congenital Anomaly)
  Sender: FDA-Public Use
  Company Number: FR-GLAXOSMITHKLINE-B0329735A

PATIENT
  Sex: Female

DRUGS (4)
  1. COMBIVIR [Suspect]
     Indication: HIV INFECTION
     Dosage: 2TAB PER DAY
     Dates: start: 20010630
  2. VIRACEPT [Suspect]
     Indication: HIV INFECTION
     Dosage: 10UNIT PER DAY
     Dates: start: 20010630
  3. VALACYCLOVIR HCL [Concomitant]
     Dosage: 1000MG PER DAY
     Dates: start: 20040313, end: 20040318
  4. RETROVIR [Concomitant]
     Indication: ANTIVIRAL PROPHYLAXIS
     Route: 048
     Dates: start: 20030316, end: 20030319

REACTIONS (18)
  - ASCITES [None]
  - BLOOD CREATININE INCREASED [None]
  - BLOOD LACTIC ACID INCREASED [None]
  - CARDIOMEGALY [None]
  - CONGENITAL ATRIAL SEPTAL DEFECT [None]
  - DRUG EXPOSURE DURING PREGNANCY [None]
  - FLATULENCE [None]
  - FOETAL GROWTH RETARDATION [None]
  - FOETAL MOVEMENTS DECREASED [None]
  - FULL BLOOD COUNT DECREASED [None]
  - HEPATOMEGALY [None]
  - NEONATAL RESPIRATORY DISTRESS SYNDROME [None]
  - OLIGOHYDRAMNIOS [None]
  - PLEURAL EFFUSION [None]
  - PREMATURE BABY [None]
  - PULMONARY HYPERTENSION [None]
  - TRICUSPID VALVE INCOMPETENCE [None]
  - UMBILICAL CORD VASCULAR DISORDER [None]
